FAERS Safety Report 23133225 (Version 1)
Quarter: 2023Q4

REPORT INFORMATION
  Report Type: Spontaneous
  Country: US (occurrence: US)
  Receive Date: 20231101
  Receipt Date: 20231101
  Transmission Date: 20240110
  Serious: Yes (Other)
  Sender: FDA-Public Use
  Company Number: US-HIKMA PHARMACEUTICALS USA INC.-US-H14001-23-66455

PATIENT
  Sex: Male

DRUGS (1)
  1. FLUTICASONE [Suspect]
     Active Substance: FLUTICASONE
     Indication: Sinusitis
     Dosage: 2 DOSAGE FORM, QD
     Route: 045

REACTIONS (5)
  - Glaucoma [Unknown]
  - Cataract [Unknown]
  - Vision blurred [Unknown]
  - Visual impairment [Unknown]
  - Off label use [Unknown]
